FAERS Safety Report 7370416-2 (Version None)
Quarter: 2011Q1

REPORT INFORMATION
  Report Type: 
  Country: None (occurrence: None)
  Receive Date: 20110323
  Receipt Date: 20110316
  Transmission Date: 20110831
  Serious: Yes (Other)
  Sender: FDA-Public Use
  Company Number: US-US-EMD SERONO, INC.-7041645

PATIENT
  Sex: Female
  Weight: 66 kg

DRUGS (4)
  1. UNSPECIFIED MEDICATIONS [Concomitant]
  2. ADDERALL 10 [Concomitant]
  3. REBIF [Suspect]
     Indication: MULTIPLE SCLEROSIS
     Route: 058
     Dates: start: 20100521
  4. BIPOLAR MEDICATION [Concomitant]
     Indication: BIPOLAR DISORDER

REACTIONS (6)
  - DEPRESSION [None]
  - CONCUSSION [None]
  - BIPOLAR DISORDER [None]
  - UNEVALUABLE EVENT [None]
  - ADVERSE DRUG REACTION [None]
  - INJECTION SITE ERYTHEMA [None]
